FAERS Safety Report 13489599 (Version 1)
Quarter: 2017Q2

REPORT INFORMATION
  Report Type: Spontaneous
  Country: US (occurrence: US)
  Receive Date: 20170426
  Receipt Date: 20170426
  Transmission Date: 20170830
  Serious: No
  Sender: FDA-Public Use
  Company Number: US-ALKERMES INC.-ALK-2017-000857

PATIENT
  Age: 39 Year
  Sex: Male

DRUGS (1)
  1. VIVITROL [Suspect]
     Active Substance: NALTREXONE
     Indication: DRUG USE DISORDER
     Dosage: 380 MG, QMO
     Route: 030
     Dates: start: 20170304

REACTIONS (8)
  - Abdominal discomfort [Unknown]
  - Dry mouth [Unknown]
  - Headache [Unknown]
  - Viral upper respiratory tract infection [Unknown]
  - Poor quality sleep [Unknown]
  - Diarrhoea [Unknown]
  - Drug use disorder [Unknown]
  - Pain [Unknown]

NARRATIVE: CASE EVENT DATE: 201703
